APPROVED DRUG PRODUCT: HISPRIL
Active Ingredient: DIPHENYLPYRALINE HYDROCHLORIDE
Strength: 5MG
Dosage Form/Route: CAPSULE, EXTENDED RELEASE;ORAL
Application: N011945 | Product #001
Applicant: GLAXOSMITHKLINE
Approved: Approved Prior to Jan 1, 1982 | RLD: No | RS: No | Type: DISCN